FAERS Safety Report 5113063-5 (Version None)
Quarter: 2006Q3

REPORT INFORMATION
  Report Type: 
  Country: None (occurrence: None)
  Receive Date: 20060920
  Receipt Date: 20060909
  Transmission Date: 20061208
  Serious: Yes (Other)
  Sender: FDA-Public Use
  Company Number: 2006072619

PATIENT
  Sex: Female
  Weight: 102.0593 kg

DRUGS (7)
  1. DETROL [Suspect]
     Indication: DYSURIA
     Dosage: 4 MG (2 MG, 2 IN 1 D), ORAL
     Route: 048
     Dates: start: 20050101
  2. DETROL [Suspect]
     Indication: POLLAKIURIA
     Dosage: 4 MG (2 MG, 2 IN 1 D), ORAL
     Route: 048
     Dates: start: 20050101
  3. METFORMIN HCL [Concomitant]
  4. ATENOLOL [Concomitant]
  5. DIGITEX (DIGOXIN) [Concomitant]
  6. LISINOPRIL [Concomitant]
  7. VITAMINS (VITAMINS) [Concomitant]

REACTIONS (3)
  - CONDITION AGGRAVATED [None]
  - CYST [None]
  - MUSCULOSKELETAL PAIN [None]
